FAERS Safety Report 17350927 (Version 1)
Quarter: 2020Q1

REPORT INFORMATION
  Report Type: Spontaneous
  Country: US (occurrence: US)
  Receive Date: 20200130
  Receipt Date: 20200130
  Transmission Date: 20200409
  Serious: No
  Sender: FDA-Public Use
  Company Number: US-ASTRAZENECA-2020SE02497

PATIENT
  Sex: Female

DRUGS (5)
  1. LANTOPROST [Concomitant]
  2. SYMBICORT [Suspect]
     Active Substance: BUDESONIDE\FORMOTEROL FUMARATE DIHYDRATE
     Indication: CHRONIC OBSTRUCTIVE PULMONARY DISEASE
     Dosage: 160 UG/INHAL TWO TIMES A DAY
     Route: 055
  3. VITAMIN B-6 [Concomitant]
     Active Substance: PYRIDOXINE
  4. XARELTO [Concomitant]
     Active Substance: RIVAROXABAN
  5. PROAIR HFA [Concomitant]
     Active Substance: ALBUTEROL SULFATE

REACTIONS (2)
  - Dyspnoea [Unknown]
  - Product dose omission [Unknown]
